FAERS Safety Report 7668564-2 (Version None)
Quarter: 2011Q3

REPORT INFORMATION
  Report Type: 
  Country: None (occurrence: None)
  Receive Date: 20110808
  Receipt Date: 20110802
  Transmission Date: 20111222
  Serious: Yes (Hospitalization, Disabling)
  Sender: FDA-Public Use
  Company Number: ZA-SANOFI-AVENTIS-2011SA030338

PATIENT
  Age: 69 Year
  Sex: Male
  Weight: 72 kg

DRUGS (12)
  1. DOCETAXEL [Suspect]
     Indication: PROSTATE CANCER
     Route: 042
     Dates: start: 20100921, end: 20100921
  2. ZOFRAN [Concomitant]
     Route: 048
     Dates: start: 20101116, end: 20101118
  3. TAMSULOSIN HYDROCHLORIDE [Concomitant]
     Indication: MICTURITION DISORDER
     Route: 048
     Dates: start: 20101012
  4. BLINDED THERAPY [Suspect]
     Indication: PROSTATE CANCER
     Route: 048
     Dates: start: 20100921
  5. PREDNISONE [Suspect]
     Route: 065
     Dates: start: 20101116, end: 20101120
  6. OMEPRAZOLE [Concomitant]
     Indication: GASTRIC ULCER
     Route: 048
     Dates: start: 20101025
  7. PREDNISONE [Suspect]
     Indication: PROSTATE CANCER
     Route: 065
     Dates: start: 20100921
  8. BETAMETHASONE [Concomitant]
     Indication: PREMEDICATION
     Route: 048
     Dates: start: 20100920
  9. BETAMETHASONE [Concomitant]
     Route: 048
     Dates: start: 20101115
  10. BLINDED THERAPY [Suspect]
     Route: 048
     Dates: start: 20101116, end: 20101120
  11. DOCETAXEL [Suspect]
     Route: 042
     Dates: start: 20101116, end: 20101116
  12. OMEPRAZOLE [Concomitant]
     Route: 048
     Dates: start: 20101025

REACTIONS (1)
  - ISCHAEMIC STROKE [None]
